FAERS Safety Report 4963260-4 (Version None)
Quarter: 2006Q2

REPORT INFORMATION
  Report Type: 
  Country: None (occurrence: None)
  Receive Date: 20060405
  Receipt Date: 20050303
  Transmission Date: 20061013
  Serious: Yes (Hospitalization, Other)
  Sender: FDA-Public Use
  Company Number: US-MERCK-0503USA00858

PATIENT
  Age: 58 Year
  Sex: Male
  Weight: 90 kg

DRUGS (3)
  1. VIOXX [Suspect]
     Indication: SPONDYLITIS
     Route: 048
     Dates: start: 20030103, end: 20040930
  2. VIOXX [Suspect]
     Indication: NERVE COMPRESSION
     Route: 048
     Dates: start: 20030103, end: 20040930
  3. TYLENOL (CAPLET) [Concomitant]
     Route: 065

REACTIONS (3)
  - CORONARY ARTERY DISEASE [None]
  - MYOCARDIAL INFARCTION [None]
  - VIRAL INFECTION [None]
